FAERS Safety Report 13951497 (Version 4)
Quarter: 2018Q3

REPORT INFORMATION
  Report Type: Spontaneous
  Country: US (occurrence: US)
  Receive Date: 20170908
  Receipt Date: 20180917
  Transmission Date: 20181010
  Serious: Yes (Other)
  Sender: FDA-Public Use
  Company Number: US-DSJP-DSU-2017-136100

PATIENT

DRUGS (2)
  1. BENICAR HCT [Suspect]
     Active Substance: HYDROCHLOROTHIAZIDE\OLMESARTAN MEDOXOMIL
     Indication: HYPERTENSION
     Dosage: 40/12.5MG, QD
     Route: 048
     Dates: start: 20040929, end: 20160428
  2. BENICAR [Suspect]
     Active Substance: OLMESARTAN MEDOXOMIL
     Indication: PRODUCT USED FOR UNKNOWN INDICATION
     Dosage: UNK
     Dates: start: 20040929, end: 20160428

REACTIONS (6)
  - Hypotension [Unknown]
  - Abdominal pain [Recovered/Resolved]
  - Abnormal loss of weight [Recovered/Resolved]
  - Acute kidney injury [Unknown]
  - Syncope [Unknown]
  - Nausea [Recovered/Resolved]

NARRATIVE: CASE EVENT DATE: 20110106
